FAERS Safety Report 16314482 (Version 1)
Quarter: 2019Q2

REPORT INFORMATION
  Report Type: Spontaneous
  Country: PT (occurrence: PT)
  Receive Date: 20190515
  Receipt Date: 20190515
  Transmission Date: 20190711
  Serious: Yes (Other)
  Sender: FDA-Public Use
  Company Number: PT-MYLANLABS-2019M1046258

PATIENT
  Age: 86 Year
  Sex: Female

DRUGS (9)
  1. BILOBAN [Concomitant]
     Indication: DEMENTIA
     Dosage: 2 DOSAGE FORM, QD
     Route: 048
  2. SINGULAIR [Concomitant]
     Active Substance: MONTELUKAST SODIUM
     Indication: HYPERSENSITIVITY
     Dosage: 1 DOSAGE FORM, QD
     Route: 048
  3. REFRESH CELLUVISC [Concomitant]
     Active Substance: CARBOXYMETHYLCELLULOSE SODIUM
     Indication: DRY EYE
     Dosage: 2 DROP, QD
  4. TRIMETAZIDINA MYLAN [Concomitant]
     Active Substance: TRIMETAZIDINE
     Indication: ANGINA PECTORIS
     Dosage: 2 DOSAGE FORM, QD
     Route: 048
  5. BENDALINE [Concomitant]
     Indication: CATARACT
     Dosage: 1 DOSAGE FORM, QD
     Route: 048
  6. OCULOTECT                          /00056002/ [Concomitant]
     Indication: DRY EYE
     Dosage: UNK, QD (SEVERAL TIMES)
  7. FOSAVANCE [Concomitant]
     Active Substance: ALENDRONATE SODIUM\CHOLECALCIFEROL
     Indication: OSTEOPOROSIS
     Dosage: 1 DOSAGE FORM, QW
     Route: 048
  8. MICARDIS [Concomitant]
     Active Substance: TELMISARTAN
     Indication: HYPERTENSION
     Dosage: 1 DOSAGE FORM, QD
     Route: 048
  9. ISOPTIN DC, 120 MG, COMPRIMIDO DE LIBERTA??O PROLONGADA. [Suspect]
     Active Substance: VERAPAMIL HYDROCHLORIDE
     Indication: HYPERTENSION
     Dosage: 1 DOSAGE FORM, QD (IN MORNING)
     Route: 048
     Dates: start: 201904

REACTIONS (4)
  - Malaise [Recovered/Resolved]
  - Blood pressure increased [Not Recovered/Not Resolved]
  - Headache [Recovered/Resolved]
  - Product dose omission [Not Recovered/Not Resolved]

NARRATIVE: CASE EVENT DATE: 2019
